FAERS Safety Report 20503695 (Version 1)
Quarter: 2022Q1

REPORT INFORMATION
  Report Type: Spontaneous
  Country: US (occurrence: US)
  Receive Date: 20220222
  Receipt Date: 20220222
  Transmission Date: 20220423
  Serious: No
  Sender: FDA-Public Use
  Company Number: US-PFIZER INC-202101654025

PATIENT
  Age: 62 Year
  Sex: Male

DRUGS (1)
  1. XELJANZ [Suspect]
     Active Substance: TOFACITINIB CITRATE
     Indication: Crohn^s disease
     Dosage: 10 MG, 2X/DAY (TWICE DAILY FOR 7 DAYS)
     Dates: start: 20211015

REACTIONS (3)
  - Off label use [Unknown]
  - Tooth infection [Unknown]
  - Pulpitis dental [Recovering/Resolving]

NARRATIVE: CASE EVENT DATE: 20211101
